FAERS Safety Report 14568915 (Version 4)
Quarter: 2021Q3

REPORT INFORMATION
  Report Type: Report from Study
  Country: FR (occurrence: FR)
  Receive Date: 20180223
  Receipt Date: 20210901
  Transmission Date: 20211014
  Serious: Yes (Hospitalization)
  Sender: FDA-Public Use
  Company Number: FR-SHIRE-FR201806519

PATIENT
  Age: 4 Year
  Sex: Male

DRUGS (5)
  1. SOLUPRED                           /00016201/ [Concomitant]
     Active Substance: PREDNISOLONE
     Indication: PROPHYLAXIS
  2. IDURSULFASE [Suspect]
     Active Substance: IDURSULFASE
     Dosage: 0.35?0.5 MG/KG, 1X/WEEK
     Route: 065
     Dates: start: 20160622, end: 20170131
  3. IDURSULFASE [Suspect]
     Active Substance: IDURSULFASE
     Dosage: UNK
     Route: 042
  4. IDURSULFASE [Suspect]
     Active Substance: IDURSULFASE
     Indication: MUCOPOLYSACCHARIDOSIS II
     Dosage: 0.35?0.5 MG/KG, 1X/WEEK
     Route: 065
     Dates: start: 20160615, end: 20160621
  5. IDURSULFASE [Suspect]
     Active Substance: IDURSULFASE
     Dosage: 0.5 MG/KG, 1X/WEEK
     Route: 065
     Dates: start: 20170201

REACTIONS (4)
  - Adenoidal hypertrophy [Recovered/Resolved]
  - Carpal tunnel syndrome [Recovered/Resolved]
  - Tonsillar hypertrophy [Recovered/Resolved]
  - Otitis media [Recovered/Resolved]

NARRATIVE: CASE EVENT DATE: 20171031
